FAERS Safety Report 19257995 (Version 4)
Quarter: 2021Q3

REPORT INFORMATION
  Report Type: Report from Study
  Country: US (occurrence: US)
  Receive Date: 20210514
  Receipt Date: 20210825
  Transmission Date: 20211014
  Serious: Yes (Death, Hospitalization)
  Sender: FDA-Public Use
  Company Number: US-BAUSCH-BL-2021-016216

PATIENT
  Age: 82 Year
  Sex: Male

DRUGS (2)
  1. ANCOBON [Suspect]
     Active Substance: FLUCYTOSINE
     Indication: FUNGAL INFECTION
     Route: 048
     Dates: start: 202104, end: 202106
  2. COUMADIN [Concomitant]
     Active Substance: WARFARIN SODIUM
     Indication: PRODUCT USED FOR UNKNOWN INDICATION

REACTIONS (5)
  - Abdominal pain upper [Recovering/Resolving]
  - Endocarditis candida [Unknown]
  - Diarrhoea [Recovering/Resolving]
  - Death [Fatal]
  - Insurance issue [Unknown]

NARRATIVE: CASE EVENT DATE: 2021
